FAERS Safety Report 25355369 (Version 1)
Quarter: 2025Q2

REPORT INFORMATION
  Report Type: Other
  Country: JP (occurrence: JP)
  Receive Date: 20250524
  Receipt Date: 20250524
  Transmission Date: 20250717
  Serious: Yes (Other)
  Sender: DEXCEL
  Company Number: JP-DEXPHARM-2025-3211

PATIENT
  Age: 69 Year
  Sex: Male

DRUGS (1)
  1. ESOMEPRAZOLE [Suspect]
     Active Substance: ESOMEPRAZOLE
     Indication: Barrett^s oesophagus

REACTIONS (2)
  - Gastric adenoma [Unknown]
  - Gastric cancer [Unknown]
